FAERS Safety Report 9754696 (Version 1)
Quarter: 2013Q4

REPORT INFORMATION
  Report Type: Spontaneous
  Country: US (occurrence: US)
  Receive Date: 20131213
  Receipt Date: 20131213
  Transmission Date: 20140711
  Serious: No
  Sender: FDA-Public Use
  Company Number: US-GLAXOSMITHKLINE-A1004332A

PATIENT
  Age: 42 Year
  Sex: Male

DRUGS (1)
  1. NICODERM CQ CLEAR 21MG [Suspect]
     Indication: EX-TOBACCO USER
     Dates: start: 20121123, end: 20121201

REACTIONS (10)
  - Nausea [Recovered/Resolved]
  - Vomiting [Recovered/Resolved]
  - Constipation [Recovered/Resolved]
  - Malaise [Recovered/Resolved]
  - Headache [Not Recovered/Not Resolved]
  - Abdominal pain upper [Not Recovered/Not Resolved]
  - Insomnia [Not Recovered/Not Resolved]
  - Dizziness [Not Recovered/Not Resolved]
  - Increased appetite [Recovered/Resolved]
  - Drug ineffective [Unknown]
